FAERS Safety Report 12248089 (Version 2)
Quarter: 2016Q2

REPORT INFORMATION
  Report Type: Spontaneous
  Country: CN (occurrence: CN)
  Receive Date: 20160408
  Receipt Date: 20160415
  Transmission Date: 20160815
  Serious: Yes (Death, Other)
  Sender: FDA-Public Use
  Company Number: CN-009507513-1604CHN000614

PATIENT
  Age: 44 Year
  Sex: Female

DRUGS (7)
  1. PACLITAXEL. [Concomitant]
     Active Substance: PACLITAXEL
     Indication: CHEMOTHERAPY
     Dosage: 200 MG, QD, DAY 1, PERIOD 1
     Dates: start: 20160315, end: 20160315
  2. CISPLATIN. [Concomitant]
     Active Substance: CISPLATIN
     Dosage: 30 MG, QD, DAYS 2 AND 3, PERIOD 1
     Dates: start: 20160316, end: 20160317
  3. EMEND [Suspect]
     Active Substance: APREPITANT
     Dosage: 80 MG, QD, SECOND TO SIXTH DAY
     Route: 048
     Dates: start: 201603, end: 201603
  4. EMEND [Suspect]
     Active Substance: APREPITANT
     Indication: PROPHYLAXIS OF NAUSEA AND VOMITING
     Dosage: 125 MG, ONCE, FIRST DAY
     Route: 048
     Dates: start: 201603, end: 201603
  5. DEXAMETHASONE. [Suspect]
     Active Substance: DEXAMETHASONE
     Dosage: 6 MG, ONCE, DAY 1
     Route: 048
  6. DEXAMETHASONE. [Suspect]
     Active Substance: DEXAMETHASONE
     Dosage: 3.75 MG, QD, DAYS 2-4
     Route: 048
  7. CISPLATIN. [Concomitant]
     Active Substance: CISPLATIN
     Indication: CHEMOTHERAPY
     Dosage: 40 MG, QD, DAY 1, PERIOD 1
     Dates: start: 20160315, end: 20160315

REACTIONS (6)
  - Pancreatitis necrotising [Fatal]
  - Gastrointestinal perforation [Fatal]
  - Vomiting [Fatal]
  - Abdominal pain [Fatal]
  - Intestinal obstruction [Fatal]
  - Inappropriate schedule of drug administration [Unknown]

NARRATIVE: CASE EVENT DATE: 201603
